FAERS Safety Report 20572725 (Version 1)
Quarter: 2022Q1

REPORT INFORMATION
  Report Type: Report from Study
  Country: FR (occurrence: None)
  Receive Date: 20220309
  Receipt Date: 20220309
  Transmission Date: 20220424
  Serious: Yes (Other)
  Sender: FDA-Public Use
  Company Number: 2022A100179

PATIENT
  Age: 68 Year
  Sex: Male
  Weight: 95 kg

DRUGS (15)
  1. EVUSHELD [Suspect]
     Active Substance: CILGAVIMAB\TIXAGEVIMAB
     Indication: COVID-19 prophylaxis
     Route: 030
     Dates: start: 20220114, end: 20220114
  2. DAPAGLIFLOZIN [Concomitant]
     Active Substance: DAPAGLIFLOZIN
     Dosage: 10MG, 1 IN THE MORNING
  3. KARDEGIC [Concomitant]
     Active Substance: ASPIRIN DL-LYSINE
     Dosage: 75MG: 1 AT LUNCHTIME
  4. LERCANIDIPINE [Concomitant]
     Active Substance: LERCANIDIPINE
     Dosage: 10MG: 1 IN THE MORNING AND 1 IN THE EVENING
  5. ESOMEPRAZOLE [Concomitant]
     Active Substance: ESOMEPRAZOLE
     Dosage: 20MG : 1 IN THE EVENING
  6. LYRICA [Concomitant]
     Active Substance: PREGABALIN
     Dosage: 150MG IN THE MORNING AND 75MG IN THE EVENING
  7. AVODART [Concomitant]
     Active Substance: DUTASTERIDE
     Dosage: 1 IN THE MORNING
  8. LIPTRUZET [Concomitant]
     Active Substance: ATORVASTATIN CALCIUM\EZETIMIBE
     Dosage: 10/20: 1/ DAY
  9. METFORMIN PAMOATE [Concomitant]
     Active Substance: METFORMIN PAMOATE
     Dosage: 700MG : 1 MORNING AND 1 EVENING
  10. VENTOCLAX [Concomitant]
     Dosage: 400MG / DAY
  11. BACTRIM [Concomitant]
     Active Substance: SULFAMETHOXAZOLE\TRIMETHOPRIM
     Dosage: 800MG : 1 CP X3/ WEEK
  12. VALACYCLOVIR HYDROCHLORIDE [Concomitant]
     Active Substance: VALACYCLOVIR HYDROCHLORIDE
     Dosage: 1 TABLET X2/ DAY
  13. URAPIDIL [Concomitant]
     Active Substance: URAPIDIL
     Dosage: 30MG : 1 IN THE MORNING AND 1 IN THE EVENING
  14. KAYEXALATE [Concomitant]
     Active Substance: SODIUM POLYSTYRENE SULFONATE
     Dosage: 2 MEASURING SPOON / DAY
  15. INSULIN GLARGINE [Concomitant]
     Active Substance: INSULIN GLARGINE
     Dosage: 24U IN THE MORNING

REACTIONS (2)
  - Hyperglycaemia [Recovered/Resolved]
  - Glycosylated haemoglobin increased [Recovering/Resolving]

NARRATIVE: CASE EVENT DATE: 20220129
